FAERS Safety Report 10011132 (Version 1)
Quarter: 2014Q1

REPORT INFORMATION
  Report Type: Spontaneous
  Country: US (occurrence: US)
  Receive Date: 20140314
  Receipt Date: 20140314
  Transmission Date: 20141002
  Serious: No
  Sender: FDA-Public Use
  Company Number: US-009507513-1403USA003881

PATIENT
  Sex: 0

DRUGS (1)
  1. ISENTRESS [Suspect]
     Dosage: 400 MG, Q12H
     Route: 048
     Dates: start: 20140228

REACTIONS (4)
  - Wrong technique in drug usage process [Unknown]
  - Overdose [Unknown]
  - Medication error [Unknown]
  - No adverse event [Unknown]
